FAERS Safety Report 6836681-2 (Version None)
Quarter: 2010Q3

REPORT INFORMATION
  Report Type: 
  Country: None (occurrence: None)
  Receive Date: 20100713
  Receipt Date: 20100630
  Transmission Date: 20110219
  Serious: Yes (Hospitalization, Other)
  Sender: FDA-Public Use
  Company Number: PHHY2010CA19850

PATIENT
  Sex: Female

DRUGS (1)
  1. SANDOSTATIN LAR [Suspect]
     Indication: ANAEMIA
     Dosage: 20 MG, QMO
     Route: 030
     Dates: start: 20070202

REACTIONS (5)
  - BLOOD PRESSURE INCREASED [None]
  - HAEMORRHAGE [None]
  - HYPERKERATOSIS [None]
  - OSTEOMYELITIS [None]
  - TOE AMPUTATION [None]
